FAERS Safety Report 5258899-5 (Version None)
Quarter: 2007Q1

REPORT INFORMATION
  Report Type: 
  Country: None (occurrence: None)
  Receive Date: 20070305
  Receipt Date: 20070219
  Transmission Date: 20070707
  Serious: Yes (Hospitalization)
  Sender: FDA-Public Use
  Company Number: 2007BI003767

PATIENT
  Age: 53 Year
  Sex: Female
  Weight: 57.1532 kg

DRUGS (6)
  1. AVONEX [Suspect]
     Indication: MULTIPLE SCLEROSIS
     Dosage: 30 UG; QW; IM
     Route: 030
     Dates: start: 20060805
  2. VICODIN [Concomitant]
  3. SOMA [Concomitant]
  4. ROBAXIN [Concomitant]
  5. LYRICA [Concomitant]
  6. ZOLOFT [Concomitant]

REACTIONS (4)
  - INSOMNIA [None]
  - INTERVERTEBRAL DISC OPERATION [None]
  - NERVE COMPRESSION [None]
  - PAIN [None]
